FAERS Safety Report 7694181-4 (Version None)
Quarter: 2011Q3

REPORT INFORMATION
  Report Type: 
  Country: None (occurrence: None)
  Receive Date: 20110819
  Receipt Date: 20110809
  Transmission Date: 20111222
  Serious: No
  Sender: FDA-Public Use
  Company Number: CA-ELI_LILLY_AND_COMPANY-CA201104008087

PATIENT
  Age: 64 Year
  Sex: Male
  Weight: 147 kg

DRUGS (5)
  1. AMIODARONE HCL [Concomitant]
  2. HYZAAR [Concomitant]
  3. CIALIS [Suspect]
     Indication: ERECTILE DYSFUNCTION
     Dosage: 5 MG, QD
  4. DAIVOBET [Concomitant]
  5. DIGOXIN [Concomitant]

REACTIONS (1)
  - DIPLOPIA [None]
